FAERS Safety Report 7607009-5 (Version None)
Quarter: 2011Q3

REPORT INFORMATION
  Report Type: 
  Country: None (occurrence: None)
  Receive Date: 20110706
  Receipt Date: 20110628
  Transmission Date: 20111222
  Serious: Yes (Hospitalization)
  Sender: FDA-Public Use
  Company Number: HCTZ-11-01

PATIENT
  Age: 61 Year
  Sex: Female

DRUGS (8)
  1. ASPIRIN [Concomitant]
  2. CALCIUM SUPPLEMENTS [Concomitant]
  3. HYDROCHLOROTHIAZIDE [Suspect]
  4. METHOTREXATE [Concomitant]
  5. SOLADEK [Concomitant]
  6. PANTOPRAZOLE SODIUM [Concomitant]
  7. FOLIC ACID [Concomitant]
  8. METOPROLOL TARTRATE [Concomitant]

REACTIONS (2)
  - THYROIDITIS [None]
  - HYPERCALCAEMIA [None]
